FAERS Safety Report 20907314 (Version 2)
Quarter: 2022Q3

REPORT INFORMATION
  Report Type: Spontaneous
  Country: GB (occurrence: GB)
  Receive Date: 20220602
  Receipt Date: 20220822
  Transmission Date: 20221027
  Serious: Yes (Other)
  Sender: FDA-Public Use
  Company Number: GB-BRISTOL-MYERS SQUIBB COMPANY-2022-046584

PATIENT
  Age: 51 Year
  Sex: Male

DRUGS (3)
  1. THALIDOMIDE [Suspect]
     Active Substance: THALIDOMIDE
     Indication: Behcet^s syndrome
     Dosage: DOSE : TWO 50 MG;     FREQ : EVERY NIGHT
     Route: 065
  2. ADALIMUMAB [Concomitant]
     Active Substance: ADALIMUMAB
     Indication: Product used for unknown indication
     Dosage: DOSE : UNAVAILABLE;     FREQ : 1 IN 2 WEEK
     Route: 065
  3. AZATHIOPRINE SODIUM [Concomitant]
     Active Substance: AZATHIOPRINE SODIUM
     Indication: Product used for unknown indication
     Dosage: TID
     Route: 065

REACTIONS (7)
  - Male reproductive tract disorder [Unknown]
  - Expired product administered [Unknown]
  - Blood urine present [Unknown]
  - Glucose urine present [Unknown]
  - Urinary retention [Unknown]
  - Intentional product use issue [Unknown]
  - Visual impairment [Unknown]
